FAERS Safety Report 19490916 (Version 1)
Quarter: 2021Q3

REPORT INFORMATION
  Report Type: Spontaneous
  Country: BE (occurrence: BE)
  Receive Date: 20210705
  Receipt Date: 20210705
  Transmission Date: 20211014
  Serious: Yes (Death, Life-Threatening, Hospitalization)
  Sender: FDA-Public Use
  Company Number: BE-TEVA-2021-BE-1928625

PATIENT
  Age: 51 Year
  Sex: Female

DRUGS (6)
  1. CISPLATIN. [Suspect]
     Active Substance: CISPLATIN
     Indication: THYMOMA
     Route: 065
  2. FILGRASTIM [Suspect]
     Active Substance: FILGRASTIM
     Indication: NEUTROPENIA
     Dosage: 6 INJECTIONS
     Route: 065
  3. ADRIAMYCIN [Suspect]
     Active Substance: DOXORUBICIN HYDROCHLORIDE
     Indication: THYMOMA
     Dosage: AFTER RESTARTING ? AT THE END OF THE 6TH COURSE OF CHEMOTHERAPY ? CUMULATIVE DOSE 316 MG/M2
     Route: 065
  4. CYCLOPHOSPHAMIDE. [Suspect]
     Active Substance: CYCLOPHOSPHAMIDE
     Indication: THYMOMA
     Route: 065
  5. VITAMIN D [Concomitant]
     Active Substance: VITAMIN D NOS
     Indication: MENOPAUSE
     Route: 065
  6. CASPOFUNGIN [Suspect]
     Active Substance: CASPOFUNGIN
     Indication: CANDIDA INFECTION
     Route: 065

REACTIONS (7)
  - Systemic candida [Fatal]
  - Serratia infection [Unknown]
  - Multiple organ dysfunction syndrome [Fatal]
  - Candida infection [Fatal]
  - Anaemia [Recovered/Resolved]
  - Drug ineffective [Unknown]
  - Herpes zoster [Unknown]
